FAERS Safety Report 10909830 (Version 1)
Quarter: 2015Q1

REPORT INFORMATION
  Report Type: Spontaneous
  Country: US (occurrence: US)
  Receive Date: 20150312
  Receipt Date: 20150312
  Transmission Date: 20150721
  Serious: No
  Sender: FDA-Public Use
  Company Number: US-SA-2015SA020128

PATIENT
  Age: 83 Year
  Sex: Female

DRUGS (1)
  1. NASACORT ALLERGY 24HR [Suspect]
     Active Substance: TRIAMCINOLONE ACETONIDE
     Indication: SINUS DISORDER
     Dosage: DOSE: 0.055MG PUFFS 2SQTS EA NOSTRIL DAILY
     Route: 045
     Dates: start: 20150105, end: 20150212

REACTIONS (3)
  - Nasal congestion [Not Recovered/Not Resolved]
  - Drug ineffective [Unknown]
  - Medication error [Unknown]
